FAERS Safety Report 9931344 (Version 1)
Quarter: 2014Q1

REPORT INFORMATION
  Report Type: Spontaneous
  Country: GB (occurrence: GB)
  Receive Date: 20140228
  Receipt Date: 20140228
  Transmission Date: 20141002
  Serious: Yes (Other)
  Sender: FDA-Public Use
  Company Number: GB-009507513-1402GBR013089

PATIENT
  Sex: Female

DRUGS (1)
  1. IMPLANON [Suspect]
     Indication: CONTRACEPTION
     Dosage: LEFT ARM INSERTION, 3 YEARS
     Route: 059
     Dates: start: 20110323, end: 20120614

REACTIONS (1)
  - Abortion induced [Unknown]
